FAERS Safety Report 7914111-7 (Version None)
Quarter: 2011Q4

REPORT INFORMATION
  Report Type: 
  Country: None (occurrence: None)
  Receive Date: 20111110
  Receipt Date: 20090907
  Transmission Date: 20120403
  Serious: Yes (Other)
  Sender: FDA-Public Use
  Company Number: AUR-APL-2009-00607

PATIENT
  Age: 21 Year
  Sex: Female

DRUGS (4)
  1. AMISULPRIDE (AMISULPRIDE) [Suspect]
     Indication: SCHIZOPHRENIA, PARANOID TYPE
     Dosage: 600 MG; 800 MG
  2. RISPERIDONE [Suspect]
     Indication: SCHIZOPHRENIA, PARANOID TYPE
     Dosage: 4 MG
  3. ARIPIPRAZOLE [Suspect]
     Indication: SCHIZOPHRENIA, PARANOID TYPE
     Dosage: 30 MG
  4. ZIPRASIDONE HCL [Suspect]
     Indication: SCHIZOPHRENIA, PARANOID TYPE
     Dosage: 160 MG

REACTIONS (14)
  - PSYCHOTIC DISORDER [None]
  - LOW DENSITY LIPOPROTEIN INCREASED [None]
  - METABOLIC DISORDER [None]
  - EXCESSIVE SEXUAL FANTASIES [None]
  - AMENORRHOEA [None]
  - HYPERPROLACTINAEMIA [None]
  - INSOMNIA [None]
  - WEIGHT INCREASED [None]
  - NAUSEA [None]
  - AGITATION [None]
  - OBSESSIVE-COMPULSIVE DISORDER [None]
  - HALLUCINATION, AUDITORY [None]
  - SPEECH DISORDER [None]
  - TARDIVE DYSKINESIA [None]
